FAERS Safety Report 7526787-7 (Version None)
Quarter: 2011Q2

REPORT INFORMATION
  Report Type: 
  Country: None (occurrence: None)
  Receive Date: 20110606
  Receipt Date: 20110526
  Transmission Date: 20111010
  Serious: Yes (Other)
  Sender: FDA-Public Use
  Company Number: CN-ASTRAZENECA-2011SE32411

PATIENT
  Age: 31 Year
  Sex: Male
  Weight: 60 kg

DRUGS (1)
  1. RHINOCORT [Suspect]
     Indication: RHINITIS
     Dosage: 256 MCG EVERYDAY INHALED (EACH TIME MORNING AND NIGHT)
     Route: 045
     Dates: start: 20110301

REACTIONS (3)
  - EPISTAXIS [None]
  - RHINITIS [None]
  - NASAL MUCOSAL DISORDER [None]
